FAERS Safety Report 15865486 (Version 2)
Quarter: 2019Q1

REPORT INFORMATION
  Report Type: Spontaneous
  Country: US (occurrence: US)
  Receive Date: 20190125
  Receipt Date: 20190328
  Transmission Date: 20190417
  Serious: No
  Sender: FDA-Public Use
  Company Number: US-ASTRAZENECA-2019SE04561

PATIENT
  Sex: Male
  Weight: 88.9 kg

DRUGS (7)
  1. LANTUS [Concomitant]
     Active Substance: INSULIN GLARGINE
     Indication: TYPE 2 DIABETES MELLITUS
     Dates: start: 201810
  2. FISH OIL [Concomitant]
     Active Substance: FISH OIL
  3. LOSARTAN. [Concomitant]
     Active Substance: LOSARTAN
     Indication: BLOOD PRESSURE INCREASED
     Dates: start: 201810
  4. LO DOSE ASPIRIN [Concomitant]
  5. CRESTOR [Suspect]
     Active Substance: ROSUVASTATIN CALCIUM
     Indication: LIPIDS
     Dosage: UNKNOWN
     Route: 048
  6. METFORMIN [Concomitant]
     Active Substance: METFORMIN HYDROCHLORIDE
     Indication: TYPE 2 DIABETES MELLITUS
     Dates: start: 201810
  7. BYDUREON [Suspect]
     Active Substance: EXENATIDE
     Indication: TYPE 2 DIABETES MELLITUS
     Route: 058
     Dates: start: 201810

REACTIONS (6)
  - Wrong technique in product usage process [Unknown]
  - Device issue [Unknown]
  - Underdose [Unknown]
  - Weight decreased [Unknown]
  - Intentional device misuse [Unknown]
  - Device leakage [Unknown]
